FAERS Safety Report 9868560 (Version 5)
Quarter: 2014Q2

REPORT INFORMATION
  Report Type: Report from Study
  Country: FI (occurrence: FI)
  Receive Date: 20140204
  Receipt Date: 20140528
  Transmission Date: 20141212
  Serious: Yes (Hospitalization)
  Sender: FDA-Public Use
  Company Number: FI-SA-2014SA010738

PATIENT
  Age: 43 Year
  Sex: Female
  Weight: 57.3 kg

DRUGS (10)
  1. TERIFLUNOMIDE [Suspect]
     Indication: MULTIPLE SCLEROSIS RELAPSE
     Route: 048
     Dates: start: 20100209, end: 20140115
  2. MODIODAL [Suspect]
     Indication: FATIGUE
     Route: 048
     Dates: start: 20090901
  3. BETMIGA [Suspect]
     Indication: DYSURIA
     Route: 048
     Dates: start: 20131117
  4. RIVATRIL [Concomitant]
     Indication: MULTIPLE SCLEROSIS
     Route: 048
     Dates: start: 20060511
  5. GABAPENTIN [Concomitant]
     Indication: NEURALGIA
     Route: 048
     Dates: start: 20090827
  6. CYMBALTA [Concomitant]
     Indication: DEPRESSION
     Route: 048
     Dates: start: 20131205, end: 20140107
  7. URETREN [Concomitant]
     Indication: HYPERTENSION
     Route: 048
     Dates: start: 20131003, end: 20131204
  8. LORATADINE [Concomitant]
     Indication: HYPERSENSITIVITY
     Route: 048
     Dates: start: 20131116
  9. CALCICHEW D3 [Concomitant]
     Indication: PROPHYLAXIS
     Route: 048
     Dates: start: 20131201
  10. VITAMIN D [Concomitant]
     Indication: PROPHYLAXIS
     Route: 048
     Dates: start: 20131201

REACTIONS (2)
  - Hepatic enzyme increased [Recovered/Resolved]
  - Pyrexia [Recovered/Resolved]
